FAERS Safety Report 8768503 (Version 1)
Quarter: 2012Q4

REPORT INFORMATION
  Report Type: 
  Country: NL (occurrence: NL)
  Receive Date: 20120905
  Receipt Date: 20120905
  Transmission Date: 20130627
  Serious: Yes (Other)
  Sender: FDA-Public Use
  Company Number: NL-009507513-1208NLD012377

PATIENT

DRUGS (4)
  1. ZOCOR [Suspect]
     Indication: HYPERCHOLESTEROLAEMIA
     Dosage: 50 mg, UNK
     Dates: start: 20110801, end: 20110803
  2. CRESTOR [Concomitant]
     Dosage: 1 DF, UNK
  3. EZETROL [Concomitant]
     Dosage: 1 DF, UNK
  4. PRAVASTATIN SODIUM [Concomitant]
     Dosage: 1 DF, UNK

REACTIONS (3)
  - Loss of consciousness [Recovered/Resolved]
  - Amnesia [Recovered/Resolved]
  - Muscle spasms [Recovered/Resolved]
